FAERS Safety Report 24462785 (Version 1)
Quarter: 2024Q4

REPORT INFORMATION
  Report Type: Spontaneous
  Country: FR (occurrence: FR)
  Receive Date: 20241018
  Receipt Date: 20241018
  Transmission Date: 20250114
  Serious: Yes (Hospitalization)
  Sender: SANOFI AVENTIS
  Company Number: None

PATIENT
  Age: 83 Year
  Sex: Male
  Weight: 74 kg

DRUGS (1)
  1. DUPIXENT [Suspect]
     Active Substance: DUPILUMAB
     Indication: Dermatitis atopic
     Dosage: 600 MG
     Route: 058
     Dates: start: 20240611, end: 2024

REACTIONS (3)
  - Diarrhoea [Recovered/Resolved]
  - Tremor [Recovered/Resolved]
  - Axonal neuropathy [Recovered/Resolved]

NARRATIVE: CASE EVENT DATE: 20240611
